FAERS Safety Report 6856670-1 (Version None)
Quarter: 2010Q3

REPORT INFORMATION
  Report Type: 
  Country: None (occurrence: None)
  Receive Date: 20100719
  Receipt Date: 20100715
  Transmission Date: 20110219
  Serious: Yes (Death)
  Sender: FDA-Public Use
  Company Number: JP-ASTRAZENECA-2010SE32853

PATIENT
  Age: 39 Year
  Sex: Female
  Weight: 42 kg

DRUGS (8)
  1. DIPRIVAN [Suspect]
     Indication: INDUCTION OF ANAESTHESIA
     Route: 042
  2. SEVOFLURANE [Concomitant]
     Indication: INDUCTION OF ANAESTHESIA
     Dosage: 7%
     Route: 055
  3. SEVOFLURANE [Concomitant]
     Indication: MAINTENANCE OF ANAESTHESIA
     Dosage: 7%
     Route: 055
  4. SEVOFLURANE [Concomitant]
     Dosage: 2%
     Route: 055
  5. SEVOFLURANE [Concomitant]
     Dosage: 2%
     Route: 055
  6. NITROUS OXIDE_OXYGEN [Concomitant]
     Indication: MAINTENANCE OF ANAESTHESIA
     Dosage: 40%
     Route: 055
  7. NITROUS OXIDE [Concomitant]
     Indication: MAINTENANCE OF ANAESTHESIA
     Dosage: 60%
     Route: 055
  8. METHOXAMINE HYDROCHLORIDE [Concomitant]
     Dosage: 1MG ~17 MG
     Route: 030

REACTIONS (1)
  - CARDIOGENIC SHOCK [None]
